FAERS Safety Report 17063194 (Version 1)
Quarter: 2019Q4

REPORT INFORMATION
  Report Type: Report from Study
  Country: US (occurrence: US)
  Receive Date: 20191122
  Receipt Date: 20191122
  Transmission Date: 20200122
  Serious: Yes (Death)
  Sender: FDA-Public Use
  Company Number: US-TEVA-2019-US-1139190

PATIENT
  Age: 46 Year
  Sex: Male

DRUGS (1)
  1. COPAXONE [Suspect]
     Active Substance: GLATIRAMER ACETATE
     Indication: MULTIPLE SCLEROSIS
     Dosage: THRICE A WEEK
     Route: 058
     Dates: start: 20160311

REACTIONS (1)
  - Sarcoma [Fatal]

NARRATIVE: CASE EVENT DATE: 20191101
